FAERS Safety Report 4971442-0 (Version None)
Quarter: 2006Q2

REPORT INFORMATION
  Report Type: 
  Country: None (occurrence: None)
  Receive Date: 20060411
  Receipt Date: 20060411
  Transmission Date: 20061013
  Serious: Yes (Other)
  Sender: FDA-Public Use
  Company Number: None

PATIENT
  Sex: Female
  Weight: 53.5244 kg

DRUGS (2)
  1. ALESSE [Suspect]
     Indication: CONTRACEPTION
     Dates: start: 19980401, end: 20020301
  2. ERRIN [Suspect]
     Indication: CONTRACEPTION
     Dates: start: 20060313, end: 20060408

REACTIONS (7)
  - AFFECT LABILITY [None]
  - ANXIETY [None]
  - DRUG INEFFECTIVE [None]
  - HEADACHE [None]
  - IRRITABILITY [None]
  - MOOD ALTERED [None]
  - PANIC ATTACK [None]
